FAERS Safety Report 22296568 (Version 2)
Quarter: 2023Q2

REPORT INFORMATION
  Report Type: Spontaneous
  Country: US (occurrence: US)
  Receive Date: 20230508
  Receipt Date: 20230518
  Transmission Date: 20230722
  Serious: Yes (Other)
  Sender: FDA-Public Use
  Company Number: US-PRINSTON PHARMACEUTICAL INC.-2023PRN00191

PATIENT
  Sex: Female

DRUGS (4)
  1. CLONAZEPAM [Suspect]
     Active Substance: CLONAZEPAM
     Dosage: UNK
  2. CLONAZEPAM [Suspect]
     Active Substance: CLONAZEPAM
     Dosage: CUT IT IN HALF
  3. OXYCODONE [Concomitant]
     Active Substance: OXYCODONE
     Indication: Back pain
  4. UNSPECIFIED SYNTHETIC THYROID [Concomitant]
     Indication: Product used for unknown indication

REACTIONS (7)
  - Chronic kidney disease [Unknown]
  - Spinal operation [Unknown]
  - Thyroid disorder [Unknown]
  - Headache [Unknown]
  - Insomnia [Unknown]
  - Withdrawal syndrome [Unknown]
  - Back pain [Unknown]
